FAERS Safety Report 5766692-X (Version None)
Quarter: 2008Q2

REPORT INFORMATION
  Report Type: 
  Country: None (occurrence: None)
  Receive Date: 20080610
  Receipt Date: 20080610
  Transmission Date: 20081010
  Serious: Yes (Hospitalization)
  Sender: FDA-Public Use
  Company Number: None

PATIENT
  Age: 35 Year
  Sex: Female
  Weight: 81 kg

DRUGS (1)
  1. DROSPERIDONE AND ETHINYL ETSRADIOL [Suspect]
     Indication: MENSTRUATION IRREGULAR
     Dosage: 3-20 MG-MCG DAILY PO
     Route: 048

REACTIONS (1)
  - PULMONARY EMBOLISM [None]
